FAERS Safety Report 16794370 (Version 1)
Quarter: 2019Q3

REPORT INFORMATION
  Report Type: Spontaneous
  Country: US (occurrence: US)
  Receive Date: 20190911
  Receipt Date: 20190911
  Transmission Date: 20191005
  Serious: Yes (Hospitalization)
  Sender: FDA-Public Use
  Company Number: US-GLAXOSMITHKLINE-US2019161277

PATIENT
  Age: 48 Year
  Sex: Female

DRUGS (1)
  1. BENLYSTA [Suspect]
     Active Substance: BELIMUMAB
     Indication: SYSTEMIC LUPUS ERYTHEMATOSUS
     Dosage: UNK, CYC, Q4W
     Route: 042
     Dates: end: 201903

REACTIONS (2)
  - Infection [Recovered/Resolved with Sequelae]
  - Central venous catheterisation [Unknown]

NARRATIVE: CASE EVENT DATE: 20190413
